FAERS Safety Report 14959080 (Version 1)
Quarter: 2018Q2

REPORT INFORMATION
  Report Type: Spontaneous
  Country: US (occurrence: US)
  Receive Date: 20180510
  Receipt Date: 20180510
  Transmission Date: 20180711
  Serious: Yes (Other)
  Sender: FDA-Public Use
  Company Number: None

PATIENT
  Age: 32 Year
  Sex: Female
  Weight: 52.65 kg

DRUGS (2)
  1. BUPRENORPHINE/NALOXONE [Suspect]
     Active Substance: BUPRENORPHINE\NALOXONE
     Indication: DRUG USE DISORDER
     Route: 060
     Dates: start: 20180315, end: 20180510
  2. SUBOXONE [Concomitant]
     Active Substance: BUPRENORPHINE HYDROCHLORIDE\NALOXONE HYDROCHLORIDE
     Dates: start: 20170417, end: 20180317

REACTIONS (3)
  - Product substitution issue [None]
  - Drug dependence [None]
  - Withdrawal syndrome [None]

NARRATIVE: CASE EVENT DATE: 20180322
